FAERS Safety Report 7349412-7 (Version None)
Quarter: 2011Q1

REPORT INFORMATION
  Report Type: 
  Country: None (occurrence: None)
  Receive Date: 20110314
  Receipt Date: 20100916
  Transmission Date: 20110831
  Serious: No
  Sender: FDA-Public Use
  Company Number: A0698146A

PATIENT
  Age: 55 Year
  Sex: Female

DRUGS (7)
  1. ANTI-VIRAL MEDICATION [Suspect]
     Route: 065
  2. TYKERB [Suspect]
     Dosage: 1000MG PER DAY
     Route: 048
     Dates: start: 20070726
  3. CELEXA [Concomitant]
  4. AMOXIL [Suspect]
     Indication: TOOTH INFECTION
     Dosage: 500MG THREE TIMES PER DAY
     Route: 048
     Dates: start: 20071130
  5. WELLBUTRIN [Concomitant]
  6. AMOXICILLIN [Concomitant]
  7. NEURONTIN [Concomitant]

REACTIONS (6)
  - VOMITING [None]
  - DRUG INTERACTION [None]
  - MUCOSAL INFLAMMATION [None]
  - NAUSEA [None]
  - PRURITUS [None]
  - CHAPPED LIPS [None]
